FAERS Safety Report 4660466-9 (Version None)
Quarter: 2005Q2

REPORT INFORMATION
  Report Type: 
  Country: None (occurrence: None)
  Receive Date: 20050512
  Receipt Date: 20050426
  Transmission Date: 20051028
  Serious: Yes (Disabling)
  Sender: FDA-Public Use
  Company Number: JP-GLAXOSMITHKLINE-B0379303A

PATIENT
  Age: 43 Year
  Sex: Female
  Weight: 65 kg

DRUGS (5)
  1. PAXIL [Suspect]
     Indication: PANIC DISORDER
     Dosage: 40MG AT NIGHT
     Route: 048
     Dates: start: 20031206, end: 20050413
  2. DEPAS [Concomitant]
     Indication: PANIC DISORDER
     Dosage: 6MG PER DAY
     Route: 048
     Dates: start: 20031206
  3. LUDIOMIL [Concomitant]
     Indication: DEPRESSION
     Dosage: 75MG PER DAY
     Route: 048
     Dates: start: 20031206
  4. INDERAL [Concomitant]
     Indication: HYPERTENSION
     Dosage: 60MG PER DAY
     Route: 048
     Dates: start: 20031206
  5. NICARDIPINE HCL [Concomitant]
     Indication: HYPERTENSION
     Dosage: 60MG PER DAY
     Route: 048
     Dates: start: 20031206

REACTIONS (2)
  - CONVULSION [None]
  - LOSS OF CONSCIOUSNESS [None]
